FAERS Safety Report 4692133-X (Version None)
Quarter: 2005Q2

REPORT INFORMATION
  Report Type: 
  Country: None (occurrence: None)
  Receive Date: 20050614
  Receipt Date: 20050602
  Transmission Date: 20051028
  Serious: Yes (Other)
  Sender: FDA-Public Use
  Company Number: 2005084828

PATIENT
  Sex: Female

DRUGS (1)
  1. ZOLOFT [Suspect]

REACTIONS (2)
  - ARTHRALGIA [None]
  - MULTIPLE SCLEROSIS [None]
